FAERS Safety Report 25145483 (Version 1)
Quarter: 2025Q2

REPORT INFORMATION
  Report Type: Spontaneous
  Country: AU (occurrence: AU)
  Receive Date: 20250401
  Receipt Date: 20250401
  Transmission Date: 20250717
  Serious: Yes (Death, Hospitalization, Other)
  Sender: GILEAD
  Company Number: AU-GILEAD-2025-0708806

PATIENT
  Age: 73 Year
  Sex: Female

DRUGS (1)
  1. YESCARTA [Suspect]
     Active Substance: AXICABTAGENE CILOLEUCEL
     Indication: High-grade B-cell lymphoma
     Route: 065
     Dates: start: 202502, end: 202502

REACTIONS (4)
  - Cardiac arrest [Fatal]
  - Cytokine release syndrome [Unknown]
  - Immune effector cell-associated neurotoxicity syndrome [Unknown]
  - Asthenia [Unknown]
